FAERS Safety Report 12440074 (Version 1)
Quarter: 2016Q2

REPORT INFORMATION
  Report Type: Report from Study
  Country: US (occurrence: US)
  Receive Date: 20160606
  Receipt Date: 20160606
  Transmission Date: 20160815
  Serious: No
  Sender: FDA-Public Use
  Company Number: US-AMGEN-USASL2015073874

PATIENT
  Age: 90 Year
  Sex: Male
  Weight: 69.84 kg

DRUGS (2)
  1. CRESTOR [Concomitant]
     Active Substance: ROSUVASTATIN CALCIUM
     Dosage: 1 PO SOLID, DAILY
     Route: 048
  2. PROCRIT [Suspect]
     Active Substance: ERYTHROPOIETIN
     Indication: PRODUCT USED FOR UNKNOWN INDICATION
     Dosage: 40000 UNITS (1ML), WEEKLY
     Route: 058

REACTIONS (2)
  - Fatigue [Unknown]
  - Haemoglobin abnormal [Unknown]
